FAERS Safety Report 7491105-X (Version None)
Quarter: 2011Q2

REPORT INFORMATION
  Report Type: 
  Country: None (occurrence: None)
  Receive Date: 20110519
  Receipt Date: 20110510
  Transmission Date: 20111010
  Serious: Yes (Other)
  Sender: FDA-Public Use
  Company Number: ZA-ROCHE-776429

PATIENT
  Age: 32 Year
  Sex: Male

DRUGS (3)
  1. VALIUM [Suspect]
     Route: 065
  2. CLOZAPINE [Concomitant]
     Dosage: ONE AT BEDTIME
     Route: 048
  3. VALIUM [Suspect]
     Route: 065

REACTIONS (3)
  - PSYCHOTIC DISORDER [None]
  - PARADOXICAL DRUG REACTION [None]
  - BIPOLAR DISORDER [None]
